FAERS Safety Report 7916178-9 (Version None)
Quarter: 2011Q4

REPORT INFORMATION
  Report Type: 
  Country: None (occurrence: None)
  Receive Date: 20111116
  Receipt Date: 20101008
  Transmission Date: 20120403
  Serious: Yes (Hospitalization)
  Sender: FDA-Public Use
  Company Number: US-BAYER-201018313NA

PATIENT
  Sex: Female
  Weight: 65 kg

DRUGS (7)
  1. YASMIN [Suspect]
     Indication: PREMENSTRUAL SYNDROME
     Route: 048
  2. LEXAPRO [Concomitant]
     Indication: PRODUCT USED FOR UNKNOWN INDICATION
     Route: 065
     Dates: start: 20070818, end: 20081026
  3. BISMUTH SUBSALICYLATE [Concomitant]
     Indication: ABDOMINAL DISCOMFORT
  4. YAZ [Suspect]
     Indication: PREMENSTRUAL SYNDROME
     Route: 048
     Dates: start: 20070901, end: 20090901
  5. BISMUTH SUBSALICYLATE [Concomitant]
     Indication: PROPHYLAXIS OF NAUSEA AND VOMITING
  6. BISMUTH SUBSALICYLATE [Concomitant]
     Indication: CHOLELITHIASIS
     Route: 065
     Dates: start: 20081001, end: 20081201
  7. YAZ [Suspect]
     Indication: CONTRACEPTION
     Route: 048
     Dates: start: 20070901, end: 20090901

REACTIONS (9)
  - CHOLELITHIASIS [None]
  - ABDOMINAL PAIN UPPER [None]
  - CHOLECYSTITIS CHRONIC [None]
  - BACK PAIN [None]
  - VOMITING [None]
  - FAT INTOLERANCE [None]
  - NAUSEA [None]
  - GASTRITIS [None]
  - GASTROINTESTINAL DISORDER [None]
